FAERS Safety Report 4550820-8 (Version None)
Quarter: 2005Q1

REPORT INFORMATION
  Report Type: 
  Country: None (occurrence: None)
  Receive Date: 20050112
  Receipt Date: 20050105
  Transmission Date: 20050727
  Serious: Yes (Life-Threatening, Hospitalization, Disabling)
  Sender: FDA-Public Use
  Company Number: US-MERCK-0501USA00474

PATIENT
  Age: 74 Year
  Sex: Male

DRUGS (11)
  1. VIOXX [Suspect]
     Indication: ARTHRITIS
     Route: 048
  2. TRAMADOL HYDROCHLORIDE [Concomitant]
     Route: 065
  3. ALPRAZOLAM [Concomitant]
     Route: 065
  4. RANITIDINE [Concomitant]
     Route: 065
  5. LANOXIN [Concomitant]
     Route: 065
  6. TOPROL-XL [Concomitant]
     Route: 065
  7. NORVASC [Concomitant]
     Route: 065
  8. ZOCOR [Concomitant]
     Route: 048
  9. LISINOPRIL [Concomitant]
     Route: 065
  10. CITALOPRAM [Concomitant]
     Route: 065
  11. [THERAPY UNSPECIFIED] [Concomitant]
     Route: 065

REACTIONS (1)
  - TRANSIENT ISCHAEMIC ATTACK [None]
